FAERS Safety Report 8095133-5 (Version None)
Quarter: 2012Q1

REPORT INFORMATION
  Report Type: 
  Country: None (occurrence: None)
  Receive Date: 20120129
  Receipt Date: 20111230
  Transmission Date: 20120608
  Serious: No
  Sender: FDA-Public Use
  Company Number: US-ABBOTT-12P-163-0888579-00

PATIENT
  Age: 68 Year
  Sex: Female

DRUGS (6)
  1. HUMIRA [Suspect]
     Indication: RHEUMATOID ARTHRITIS
     Dates: start: 20111101
  2. FOLIC ACID [Concomitant]
     Indication: VITAMIN SUPPLEMENTATION
  3. PLAQUENIL [Concomitant]
     Indication: ARTHRITIS
     Dosage: DAILY
  4. DULERA ORAL INHALATION [Concomitant]
     Indication: ASTHMA
     Dosage: DAILY
  5. VITAMIN D [Concomitant]
     Indication: VITAMIN SUPPLEMENTATION
     Dosage: DAILY
  6. UNKNOWN NASAL SPRAY [Concomitant]
     Indication: ASTHMA

REACTIONS (2)
  - DRY EYE [None]
  - FATIGUE [None]
